FAERS Safety Report 21072812 (Version 3)
Quarter: 2022Q3

REPORT INFORMATION
  Report Type: Spontaneous
  Country: CH (occurrence: CH)
  Receive Date: 20220712
  Receipt Date: 20220902
  Transmission Date: 20221026
  Serious: Yes (Other)
  Sender: FDA-Public Use
  Company Number: CH-SA-SAC20220706001717

PATIENT
  Age: 32 Year
  Sex: Male

DRUGS (3)
  1. DUPIXENT [Suspect]
     Active Substance: DUPILUMAB
     Indication: Dermatitis atopic
     Dosage: 600 MG, 1X
     Dates: start: 20220414, end: 20220414
  2. DUPIXENT [Suspect]
     Active Substance: DUPILUMAB
     Dosage: 300 MG, QOW
     Dates: start: 202204, end: 20220524
  3. EUTHYROX [Concomitant]
     Active Substance: LEVOTHYROXINE SODIUM
     Indication: Autoimmune thyroiditis
     Dosage: 550 MCG/J
     Route: 048

REACTIONS (6)
  - Mononeuritis [Recovering/Resolving]
  - Limb discomfort [Recovering/Resolving]
  - VIth nerve paralysis [Recovering/Resolving]
  - Eyelid function disorder [Recovering/Resolving]
  - Diplopia [Recovering/Resolving]
  - Viral vasculitis [Recovering/Resolving]

NARRATIVE: CASE EVENT DATE: 20220501
